FAERS Safety Report 7884628-2 (Version None)
Quarter: 2011Q4

REPORT INFORMATION
  Report Type: 
  Country: None (occurrence: None)
  Receive Date: 20111102
  Receipt Date: 20111028
  Transmission Date: 20120403
  Serious: Yes (Death, Hospitalization)
  Sender: FDA-Public Use
  Company Number: GB-MERCK-1110GBR00066

PATIENT
  Age: 74 Year
  Sex: Male

DRUGS (5)
  1. ACETAMINOPHEN [Concomitant]
     Indication: ANALGESIC THERAPY
     Route: 065
  2. CANCIDAS [Suspect]
     Indication: CANDIDIASIS
     Route: 041
  3. CODEINE [Concomitant]
     Indication: ANALGESIC THERAPY
     Route: 065
  4. CEFTAZIDIME [Concomitant]
     Route: 065
  5. AMPHOTERICIN B [Concomitant]
     Indication: CANDIDIASIS
     Route: 065

REACTIONS (2)
  - TREATMENT FAILURE [None]
  - CANDIDA PNEUMONIA [None]
